FAERS Safety Report 21178215 (Version 3)
Quarter: 2022Q3

REPORT INFORMATION
  Report Type: Spontaneous
  Country: US (occurrence: US)
  Receive Date: 20220805
  Receipt Date: 20220822
  Transmission Date: 20221027
  Serious: No
  Sender: FDA-Public Use
  Company Number: US-BIOGEN-2022BI01145085

PATIENT
  Sex: Female

DRUGS (12)
  1. AVONEX [Suspect]
     Active Substance: INTERFERON BETA-1A
     Indication: Multiple sclerosis
     Dosage: INJECT INTRAMUSCULARLY ONCE WEEKLY: WEEK 1 = 1/4 DOSE, WEEK 2 = 1/2 DOSE, WEEK 3 = 3/4 DOSE, WEEK...
     Route: 050
     Dates: start: 20220727
  2. AVONEX [Suspect]
     Active Substance: INTERFERON BETA-1A
     Dosage: TITRATION DOSE
     Route: 050
     Dates: start: 20220811
  3. AVONEX [Suspect]
     Active Substance: INTERFERON BETA-1A
     Route: 050
     Dates: start: 2022
  4. AVONEX [Suspect]
     Active Substance: INTERFERON BETA-1A
  5. METHOCARBAMOL [Concomitant]
     Active Substance: METHOCARBAMOL
     Route: 050
  6. LEVOFLOXACIN [Concomitant]
     Active Substance: LEVOFLOXACIN
     Route: 050
  7. ATORVASTATIN CALCIUM [Concomitant]
     Active Substance: ATORVASTATIN CALCIUM
     Route: 050
  8. TAMSULOSIN HYDROCHLORIDE [Concomitant]
     Active Substance: TAMSULOSIN HYDROCHLORIDE
     Route: 050
  9. CLORAZEPATE DIPOTASSIUM [Concomitant]
     Active Substance: CLORAZEPATE DIPOTASSIUM
     Route: 050
  10. TOPIRAMATE [Concomitant]
     Active Substance: TOPIRAMATE
     Route: 050
  11. TYLENOL WITH CODEINE [Concomitant]
     Active Substance: ACETAMINOPHEN\CODEINE PHOSPHATE
     Route: 050
  12. TAGAMET [Concomitant]
     Active Substance: CIMETIDINE
     Route: 050

REACTIONS (9)
  - Product dose omission issue [Unknown]
  - Injury associated with device [Unknown]
  - Injection site rash [Unknown]
  - Spinal pain [Recovered/Resolved]
  - Coccydynia [Recovered/Resolved]
  - Abdominal discomfort [Recovered/Resolved]
  - Injection site erythema [Unknown]
  - Pain [Unknown]
  - Fatigue [Unknown]

NARRATIVE: CASE EVENT DATE: 20220101
